FAERS Safety Report 5254706-5 (Version None)
Quarter: 2007Q1

REPORT INFORMATION
  Report Type: 
  Country: None (occurrence: None)
  Receive Date: 20070227
  Receipt Date: 20070208
  Transmission Date: 20070707
  Serious: Yes (Hospitalization)
  Sender: FDA-Public Use
  Company Number: 232984

PATIENT
  Age: 66 Year
  Sex: Female
  Weight: 78 kg

DRUGS (7)
  1. AVASTIN [Suspect]
     Indication: COLON CANCER
     Dosage: 583 MG, Q3W, INTRAVENOUS
     Route: 042
     Dates: start: 20060828, end: 20061116
  2. CAPECITABINE(CAPECITABINE) [Suspect]
     Indication: COLON CANCER
     Dosage: 800 MG, BID, ORAL
     Route: 048
     Dates: start: 20060828, end: 20061116
  3. OXALIPLATIN [Suspect]
     Indication: COLON CANCER
     Dosage: 243 MG, Q3W, INTRAVENOUS
     Route: 042
     Dates: start: 20060828, end: 20061116
  4. OXALIPLATIN [Suspect]
  5. DIOVAN HCT [Concomitant]
  6. CLONIDINE [Concomitant]
  7. ANTIEMETICS (ANTIEMETICS) [Concomitant]

REACTIONS (9)
  - BLOOD PRESSURE INCREASED [None]
  - CONFUSIONAL STATE [None]
  - CONVULSION [None]
  - FALL [None]
  - HEADACHE [None]
  - HYPOTENSION [None]
  - NAUSEA [None]
  - REVERSIBLE POSTERIOR LEUKOENCEPHALOPATHY SYNDROME [None]
  - SYNCOPE [None]
